FAERS Safety Report 4416462-X (Version None)
Quarter: 2004Q3

REPORT INFORMATION
  Report Type: 
  Country: None (occurrence: None)
  Receive Date: 20040730
  Receipt Date: 20040719
  Transmission Date: 20050211
  Serious: Yes (Other)
  Sender: FDA-Public Use
  Company Number: 203220

PATIENT
  Age: 16 Year
  Sex: Female
  Weight: 33.8 kg

DRUGS (2)
  1. NUTROPIN AQ [Suspect]
     Indication: BODY HEIGHT BELOW NORMAL
     Dosage: 0.447 MG, QD, SUBCUTANEOUS
     Route: 058
     Dates: start: 19960305
  2. TRIPHASIL (LEVONORGESTREL, ETHINYL ESTRADIOL) [Concomitant]

REACTIONS (4)
  - BLINDNESS UNILATERAL [None]
  - HAEMANGIOMA [None]
  - HAEMORRHAGE INTRACRANIAL [None]
  - NUCLEAR MAGNETIC RESONANCE IMAGING BRAIN ABNORMAL [None]
